FAERS Safety Report 9198599 (Version 1)
Quarter: 2013Q1

REPORT INFORMATION
  Report Type: Spontaneous
  Country: US (occurrence: None)
  Receive Date: 20130327
  Receipt Date: 20130327
  Transmission Date: 20140127
  Serious: Yes (Hospitalization)
  Sender: FDA-Public Use
  Company Number: None

PATIENT
  Sex: 0

DRUGS (8)
  1. OFATUMUMAB [Suspect]
     Indication: CHRONIC LYMPHOCYTIC LEUKAEMIA
     Dosage: 1000MG, Q56DYS, IV
     Route: 042
     Dates: start: 20120327
  2. CAMPATH [Suspect]
     Indication: CHRONIC LYMPHOCYTIC LEUKAEMIA
     Route: 058
     Dates: start: 20120716
  3. ACYCLOVIR [Concomitant]
  4. ALLOPURINOL [Concomitant]
  5. BACTRIM DA (TRIMETHOPRIM/SULFAMETHOXAZOLE DOUBLE STRENGTH) [Concomitant]
  6. HYDROCHLOROTHIAZIDE [Concomitant]
  7. LOSARTAN [Concomitant]
  8. METFORMIN [Concomitant]

REACTIONS (2)
  - Pyrexia [None]
  - Night sweats [None]
